FAERS Safety Report 6204172-8 (Version None)
Quarter: 2009Q2

REPORT INFORMATION
  Report Type: 
  Country: None (occurrence: None)
  Receive Date: 20090527
  Receipt Date: 20090518
  Transmission Date: 20091009
  Serious: Yes (Other)
  Sender: FDA-Public Use
  Company Number: JP-MERCK-0905USA03330

PATIENT
  Age: 66 Year
  Sex: Female

DRUGS (2)
  1. ZETIA [Suspect]
     Indication: HYPERCHOLESTEROLAEMIA
     Route: 048
     Dates: start: 20081222, end: 20090515
  2. ZOLPIDEM TARTRATE [Concomitant]
     Route: 065
     Dates: start: 20090105, end: 20090515

REACTIONS (1)
  - LIVER DISORDER [None]
